FAERS Safety Report 11272153 (Version 1)
Quarter: 2015Q3

REPORT INFORMATION
  Report Type: Spontaneous
  Country: US (occurrence: US)
  Receive Date: 20150715
  Receipt Date: 20150715
  Transmission Date: 20151125
  Serious: Yes (Other)
  Sender: FDA-Public Use
  Company Number: US-ASTRAZENECA-2015SE67345

PATIENT
  Age: 75 Year
  Sex: Male
  Weight: 107.5 kg

DRUGS (18)
  1. PROVENGE [Suspect]
     Active Substance: SIPULEUCEL-T
     Indication: PROSTATE CANCER
     Route: 042
     Dates: start: 20140327, end: 20140327
  2. CALCIUM + VITAMIN D [Concomitant]
     Active Substance: CALCIUM\VITAMIN D
  3. ZOMETA [Concomitant]
     Active Substance: ZOLEDRONIC ACID
  4. ZOFRAN [Concomitant]
     Active Substance: ONDANSETRON HYDROCHLORIDE
  5. ASPIRIN. [Concomitant]
     Active Substance: ASPIRIN
  6. SENNA LAXATIVE [Concomitant]
     Active Substance: SENNOSIDES A AND B
  7. CASODEX [Suspect]
     Active Substance: BICALUTAMIDE
     Indication: PROSTATE CANCER
     Route: 048
  8. LISINOPRIL. [Suspect]
     Active Substance: LISINOPRIL
     Route: 048
  9. PROVENGE [Suspect]
     Active Substance: SIPULEUCEL-T
     Indication: PROSTATE CANCER
     Route: 042
     Dates: start: 20140313, end: 20140313
  10. LUPRON DEPOT-PED [Concomitant]
     Active Substance: LEUPROLIDE ACETATE
  11. HYDROCODONE BITARTRATE. [Concomitant]
     Active Substance: HYDROCODONE BITARTRATE
  12. LANTUS [Concomitant]
     Active Substance: INSULIN GLARGINE
  13. AMLODIPINE [Concomitant]
     Active Substance: AMLODIPINE BESYLATE
  14. GARLIC. [Concomitant]
     Active Substance: GARLIC
  15. PROVENGE [Suspect]
     Active Substance: SIPULEUCEL-T
     Indication: PROSTATE CANCER
     Route: 042
     Dates: start: 20140227, end: 20140227
  16. PARACETAMOL [Concomitant]
     Active Substance: ACETAMINOPHEN
  17. HUMALOG [Concomitant]
     Active Substance: INSULIN LISPRO
  18. PROCTOSOL HC [Concomitant]

REACTIONS (9)
  - Dry mouth [Not Recovered/Not Resolved]
  - Haemorrhoids [Unknown]
  - Anal fissure [Unknown]
  - Dental discomfort [Unknown]
  - Jaw disorder [Unknown]
  - Gravitational oedema [Unknown]
  - Burns first degree [Unknown]
  - Back pain [Unknown]
  - Proctalgia [Unknown]

NARRATIVE: CASE EVENT DATE: 20140313
